FAERS Safety Report 7224458-8 (Version None)
Quarter: 2011Q1

REPORT INFORMATION
  Report Type: 
  Country: None (occurrence: None)
  Receive Date: 20110113
  Receipt Date: 20110112
  Transmission Date: 20110831
  Serious: No
  Sender: FDA-Public Use
  Company Number: US-PFIZER INC-2010099533

PATIENT
  Sex: Male

DRUGS (2)
  1. METOCLOPRAMIDE [Suspect]
     Dosage: UNK
     Dates: start: 20110112
  2. LIPITOR [Suspect]
     Dosage: UNK
     Route: 048
     Dates: start: 20110111

REACTIONS (1)
  - DIARRHOEA [None]
